FAERS Safety Report 6145514-1 (Version None)
Quarter: 2009Q2

REPORT INFORMATION
  Report Type: 
  Country: None (occurrence: None)
  Receive Date: 20090406
  Receipt Date: 20090325
  Transmission Date: 20091009
  Serious: Yes (Hospitalization, Other)
  Sender: FDA-Public Use
  Company Number: US-PFIZER INC-2008025786

PATIENT
  Sex: Female
  Weight: 62.272 kg

DRUGS (7)
  1. CHANTIX [Suspect]
     Indication: SMOKING CESSATION THERAPY
     Dates: start: 20070901
  2. GABAPENTIN [Suspect]
     Dosage: UNK
  3. HYDROCODONE BITARTRATE [Concomitant]
  4. TIZANIDINE HYDROCHLORIDE [Concomitant]
  5. DIAZEPAM [Concomitant]
  6. ROZEREM [Concomitant]
  7. PROMETHAZINE [Concomitant]

REACTIONS (4)
  - CARDIAC DISORDER [None]
  - CONVULSION [None]
  - DYSPNOEA [None]
  - PYREXIA [None]
